FAERS Safety Report 8900231 (Version 1)
Quarter: 2012Q4

REPORT INFORMATION
  Report Type: 
  Country: US (occurrence: US)
  Receive Date: 20121109
  Receipt Date: 20121109
  Transmission Date: 20130627
  Serious: Yes (Other)
  Sender: FDA-Public Use
  Company Number: US-BAYER-2012-114761

PATIENT
  Age: 49 Year
  Sex: Female
  Weight: 75 kg

DRUGS (1)
  1. MIRENA [Suspect]
     Indication: CONTRACEPTION
     Dosage: 20 mcg/24hr, CONT
     Dates: start: 20081205

REACTIONS (6)
  - Loss of consciousness [Recovered/Resolved]
  - Fall [Recovered/Resolved]
  - Joint dislocation [None]
  - Musculoskeletal pain [None]
  - Face oedema [None]
  - Loss of consciousness [Recovered/Resolved]
